FAERS Safety Report 8104734-7 (Version None)
Quarter: 2012Q1

REPORT INFORMATION
  Report Type: 
  Country: None (occurrence: None)
  Receive Date: 20120130
  Receipt Date: 20120124
  Transmission Date: 20120608
  Serious: No
  Sender: FDA-Public Use
  Company Number: US-PFIZER INC-2012019895

PATIENT
  Sex: Female
  Weight: 77.098 kg

DRUGS (3)
  1. PRISTIQ [Suspect]
     Indication: DEPRESSION
     Dosage: 50 MG, 1X/DAY
     Route: 048
     Dates: start: 20090101
  2. TRAZODONE [Concomitant]
     Indication: INSOMNIA
     Dosage: UNK
  3. CLONAZEPAM [Concomitant]
     Indication: INSOMNIA
     Dosage: UNK

REACTIONS (2)
  - NEURALGIA [None]
  - NAUSEA [None]
